FAERS Safety Report 8462815 (Version 2)
Quarter: 2015Q1

REPORT INFORMATION
  Report Type: Spontaneous
  Country: US (occurrence: US)
  Receive Date: 20120316
  Receipt Date: 20150303
  Transmission Date: 20150721
  Serious: Yes (Life-Threatening, Congenital Anomaly, Other)
  Sender: FDA-Public Use
  Company Number: US-ELI_LILLY_AND_COMPANY-US201203000933

PATIENT
  Sex: Female

DRUGS (1)
  1. PROZAC [Suspect]
     Active Substance: FLUOXETINE HYDROCHLORIDE
     Indication: PRODUCT USED FOR UNKNOWN INDICATION
     Dosage: UNK, UNKNOWN
     Route: 064

REACTIONS (6)
  - Withdrawal syndrome [Unknown]
  - Respiratory distress [Unknown]
  - Persistent foetal circulation [Unknown]
  - Cardiac septal defect [Unknown]
  - Exposure during pregnancy [Recovered/Resolved]
  - Adverse event [Unknown]
